FAERS Safety Report 5089589-X (Version None)
Quarter: 2006Q3

REPORT INFORMATION
  Report Type: 
  Country: None (occurrence: None)
  Receive Date: 20060822
  Receipt Date: 20060815
  Transmission Date: 20061208
  Serious: Yes (Other)
  Sender: FDA-Public Use
  Company Number: 2006098914

PATIENT
  Age: 43 Year
  Sex: Female

DRUGS (1)
  1. XALATAN [Suspect]
     Indication: GLAUCOMA
     Dosage: 3 MCG (1.5 MCG, 2 IN 1 D), OPHTHALMIC
     Route: 047
     Dates: start: 20060501

REACTIONS (1)
  - INTRAOCULAR PRESSURE DECREASED [None]
